FAERS Safety Report 18410524 (Version 1)
Quarter: 2020Q4

REPORT INFORMATION
  Report Type: Spontaneous
  Country: FR (occurrence: FR)
  Receive Date: 20201021
  Receipt Date: 20201021
  Transmission Date: 20210114
  Serious: Yes (Life-Threatening)
  Sender: FDA-Public Use
  Company Number: FR-PFIZER INC-2020406028

PATIENT
  Age: 56 Year
  Sex: Female
  Weight: 86 kg

DRUGS (10)
  1. TAZOCILLINE [Suspect]
     Active Substance: PIPERACILLIN SODIUM\TAZOBACTAM SODIUM
     Indication: BRONCHITIS
     Dosage: 4 G, 1X/DAY
     Route: 042
     Dates: start: 20200526, end: 20200609
  2. INNOVAIR [Concomitant]
     Active Substance: BECLOMETHASONE DIPROPIONATE\FORMOTEROL
     Dosage: UNK
  3. LOVENOX [Concomitant]
     Active Substance: ENOXAPARIN SODIUM
     Dosage: UNK
  4. L THYROXIN HENNING [Concomitant]
     Active Substance: LEVOTHYROXINE SODIUM
     Dosage: UNK
  5. GENTAMICINE PANPHARMA [Suspect]
     Active Substance: GENTAMICIN
     Indication: BRONCHITIS
     Dosage: 260 MG, 1X/DAY
     Route: 042
     Dates: start: 20200527, end: 20200527
  6. PIPERACILLIN AND TAZOBACTAM [Concomitant]
     Active Substance: PIPERACILLIN SODIUM\TAZOBACTAM SODIUM
     Dosage: UNK
  7. IPRATROPIUM ARROW [Concomitant]
     Active Substance: IPRATROPIUM
     Dosage: UNK
  8. OROZAMUDOL [Suspect]
     Active Substance: TRAMADOL
     Indication: PAIN
     Dosage: 100 MG, 1X/DAY
     Route: 048
     Dates: start: 20200527, end: 20200527
  9. SALBUTAMOL [Concomitant]
     Active Substance: ALBUTEROL
     Dosage: UNK
  10. ISOPTINE [Concomitant]
     Active Substance: VERAPAMIL HYDROCHLORIDE
     Dosage: UNK

REACTIONS (6)
  - Speech disorder [Recovered/Resolved]
  - Off label use [Unknown]
  - Hot flush [Recovered/Resolved]
  - Product use in unapproved indication [Unknown]
  - Palatal oedema [Recovered/Resolved]
  - Laryngeal oedema [Recovered/Resolved]

NARRATIVE: CASE EVENT DATE: 20200526
